FAERS Safety Report 25140552 (Version 1)
Quarter: 2025Q1

REPORT INFORMATION
  Report Type: Spontaneous
  Country: US (occurrence: US)
  Receive Date: 20250331
  Receipt Date: 20250331
  Transmission Date: 20250409
  Serious: Yes (Life-Threatening, Hospitalization)
  Sender: TEVA
  Company Number: US-TEVA-VS-3314607

PATIENT
  Age: 29 Year
  Sex: Female

DRUGS (2)
  1. CAPTOPRIL [Suspect]
     Active Substance: CAPTOPRIL
     Indication: Mitral valve prolapse
     Route: 065
  2. METOPROLOL SUCCINATE [Suspect]
     Active Substance: METOPROLOL SUCCINATE
     Indication: Mitral valve prolapse
     Route: 065

REACTIONS (1)
  - Drug ineffective [Unknown]
